FAERS Safety Report 7001288-3 (Version None)
Quarter: 2010Q3

REPORT INFORMATION
  Report Type: 
  Country: None (occurrence: None)
  Receive Date: 20100920
  Receipt Date: 20100527
  Transmission Date: 20110219
  Serious: No
  Sender: FDA-Public Use
  Company Number: US-ASTRAZENECA-2009UW19354

PATIENT
  Age: 34 Year
  Sex: Female
  Weight: 170.1 kg

DRUGS (1)
  1. SEROQUEL [Suspect]
     Indication: POST-TRAUMATIC STRESS DISORDER
     Route: 048
     Dates: start: 20010101

REACTIONS (7)
  - BLEPHAROSPASM [None]
  - EYE MOVEMENT DISORDER [None]
  - GALACTORRHOEA [None]
  - HYPOKALAEMIA [None]
  - OEDEMA PERIPHERAL [None]
  - SWOLLEN TONGUE [None]
  - WEIGHT INCREASED [None]
